FAERS Safety Report 5017527-4 (Version None)
Quarter: 2006Q2

REPORT INFORMATION
  Report Type: 
  Country: None (occurrence: None)
  Receive Date: 20060601
  Receipt Date: 20060601
  Transmission Date: 20061013
  Serious: Yes (Hospitalization)
  Sender: FDA-Public Use
  Company Number: None

PATIENT
  Age: 46 Year
  Sex: Male
  Weight: 66 kg

DRUGS (1)
  1. PHENYTOIN [Suspect]
     Indication: CONVULSION
     Dosage: 550MG PO DAILY
     Route: 048

REACTIONS (9)
  - ALCOHOL POISONING [None]
  - AMNESIA [None]
  - ANTICONVULSANT DRUG LEVEL INCREASED [None]
  - ASTHENIA [None]
  - CONFUSIONAL STATE [None]
  - DIZZINESS [None]
  - DYSSTASIA [None]
  - FALL [None]
  - HAEMATOMA [None]
